FAERS Safety Report 7737300-3 (Version None)
Quarter: 2011Q3

REPORT INFORMATION
  Report Type: 
  Country: None (occurrence: None)
  Receive Date: 20110908
  Receipt Date: 20110902
  Transmission Date: 20111222
  Serious: Yes (Hospitalization, Disabling, Other)
  Sender: FDA-Public Use
  Company Number: DE-ABBOTT-11P-062-0718300-00

PATIENT
  Sex: Female
  Weight: 49 kg

DRUGS (5)
  1. PREDNISOLONE [Concomitant]
     Indication: PRODUCT USED FOR UNKNOWN INDICATION
     Dosage: 50 MILLIGRAMS DAILY
  2. BISOPROLOL FUMARATE [Concomitant]
     Indication: PRODUCT USED FOR UNKNOWN INDICATION
  3. PANTOPRAZOLE [Concomitant]
     Indication: PRODUCT USED FOR UNKNOWN INDICATION
     Dosage: 20 MILLIGRAMS DAILY
  4. HUMIRA [Suspect]
     Dates: end: 20110810
  5. HUMIRA [Suspect]
     Indication: CROHN'S DISEASE
     Route: 058
     Dates: start: 20101205, end: 20110309

REACTIONS (6)
  - INTESTINAL FISTULA [None]
  - CROHN'S DISEASE [None]
  - PERIPHERAL NERVE LESION [None]
  - WEIGHT DECREASED [None]
  - MONOPLEGIA [None]
  - ABSCESS INTESTINAL [None]
